FAERS Safety Report 5196311-5 (Version None)
Quarter: 2006Q4

REPORT INFORMATION
  Report Type: 
  Country: None (occurrence: None)
  Receive Date: 20061222
  Receipt Date: 20061211
  Transmission Date: 20070319
  Serious: Yes (Hospitalization)
  Sender: FDA-Public Use
  Company Number: 2006151535

PATIENT
  Age: 84 Year
  Sex: Female

DRUGS (5)
  1. AMLODIPINE [Suspect]
     Dosage: 5 MG, ORAL
     Route: 048
  2. PERINDOPRIL ERBUMINE [Suspect]
     Dosage: 2 MG (ONCE DAILY), ORAL
     Route: 048
  3. PREVISCAN (FLUINDIONE) [Suspect]
     Indication: ATRIAL FLUTTER
     Dosage: (15 MG, ONCE DAILY), ORAL
     Route: 048
     Dates: end: 20060924
  4. GLUCOPHAGE [Suspect]
     Dosage: 500 MG (ONCE DAILY), ORAL
     Route: 048
  5. LASIX [Suspect]
     Dosage: 40 MG, ORAL
     Route: 048

REACTIONS (3)
  - FALL [None]
  - INTERNATIONAL NORMALISED RATIO INCREASED [None]
  - SUBDURAL HAEMATOMA [None]
